FAERS Safety Report 8155124-2 (Version None)
Quarter: 2012Q1

REPORT INFORMATION
  Report Type: 
  Country: None (occurrence: None)
  Receive Date: 20120221
  Receipt Date: 20120213
  Transmission Date: 20120608
  Serious: Yes (Life-Threatening, Hospitalization)
  Sender: FDA-Public Use
  Company Number: FR-ROCHE-717685

PATIENT
  Sex: Male
  Weight: 89 kg

DRUGS (3)
  1. SANDOGLOBULIN [Concomitant]
     Indication: INFECTION PROPHYLAXIS
  2. IMMUNE GLOBULIN INTRAVENOUS (HUMAN) [Concomitant]
     Indication: INFECTION PROPHYLAXIS
     Dosage: DRUG REPORTED AS: PRIVIGEN.
     Route: 042
  3. MABTHERA [Suspect]
     Indication: B-CELL LYMPHOMA
     Route: 065

REACTIONS (2)
  - HYPOGAMMAGLOBULINAEMIA [None]
  - LUNG DISORDER [None]
